FAERS Safety Report 18907941 (Version 1)
Quarter: 2021Q1

REPORT INFORMATION
  Report Type: Spontaneous
  Country: CA (occurrence: CA)
  Receive Date: 20210218
  Receipt Date: 20210218
  Transmission Date: 20210420
  Serious: Yes (Disabling)
  Sender: FDA-Public Use
  Company Number: CA-AUROBINDO-AUR-APL-2021-006103

PATIENT
  Age: 23 Year
  Sex: Female
  Weight: 58 kg

DRUGS (1)
  1. CITALOPRAM [Suspect]
     Active Substance: CITALOPRAM HYDROBROMIDE
     Indication: DEPRESSION
     Dosage: 30 MILLIGRAM, ONCE A DAY
     Route: 048

REACTIONS (3)
  - Sexual dysfunction [Not Recovered/Not Resolved]
  - Genital hypoaesthesia [Not Recovered/Not Resolved]
  - Emotional disorder [Not Recovered/Not Resolved]
